FAERS Safety Report 13722972 (Version 1)
Quarter: 2017Q3

REPORT INFORMATION
  Report Type: Spontaneous
  Country: US (occurrence: US)
  Receive Date: 20170706
  Receipt Date: 20170706
  Transmission Date: 20171127
  Serious: No
  Sender: FDA-Public Use
  Company Number: US-JNJFOC-20170610269

PATIENT
  Age: 47 Year
  Sex: Female

DRUGS (3)
  1. LEVAQUIN [Suspect]
     Active Substance: LEVOFLOXACIN
     Indication: CANDIDA INFECTION
     Route: 048
     Dates: start: 200709
  2. DIFLUCAN [Suspect]
     Active Substance: FLUCONAZOLE
     Indication: CANDIDA INFECTION
     Route: 048
  3. DIFLUCAN [Suspect]
     Active Substance: FLUCONAZOLE
     Indication: FUNGAL INFECTION
     Route: 048

REACTIONS (5)
  - Feeling abnormal [Unknown]
  - Swelling [Unknown]
  - Weight decreased [Unknown]
  - Arthralgia [Unknown]
  - Weight increased [Unknown]

NARRATIVE: CASE EVENT DATE: 200710
